FAERS Safety Report 13672234 (Version 1)
Quarter: 2017Q2

REPORT INFORMATION
  Report Type: Spontaneous
  Country: US (occurrence: US)
  Receive Date: 20170620
  Receipt Date: 20170620
  Transmission Date: 20170830
  Serious: Yes (Other)
  Sender: FDA-Public Use
  Company Number: None

PATIENT
  Age: 43 Year
  Sex: Female
  Weight: 71.1 kg

DRUGS (7)
  1. VITAMIN D [Concomitant]
     Active Substance: CHOLECALCIFEROL
  2. AMOREPACIFIC AGE CORRECTING FOUNDATION CUSHION 208 [Suspect]
     Active Substance: OCTINOXATE
     Indication: THERAPEUTIC SKIN CARE TOPICAL
     Route: 061
  3. FISH OIL [Concomitant]
     Active Substance: FISH OIL
  4. MULTIVITAMIN [Concomitant]
     Active Substance: VITAMINS
  5. FIBER [Concomitant]
     Active Substance: PSYLLIUM HUSK
  6. PROBIOTICS [Concomitant]
     Active Substance: PROBIOTICS NOS
  7. AMOREPACIFIC FUTURE RESPONSE AGE DEFENSE SPF30 [Suspect]
     Active Substance: OCTINOXATE\OCTISALATE\OCTOCRYLENE\TITANIUM DIOXIDE
     Indication: THERAPEUTIC SKIN CARE TOPICAL
     Route: 061

REACTIONS (1)
  - Dermatitis contact [None]

NARRATIVE: CASE EVENT DATE: 20170613
